FAERS Safety Report 5102705-6 (Version None)
Quarter: 2006Q3

REPORT INFORMATION
  Report Type: 
  Country: None (occurrence: None)
  Receive Date: 20060907
  Receipt Date: 20060824
  Transmission Date: 20061208
  Serious: Yes (Hospitalization)
  Sender: FDA-Public Use
  Company Number: DEU-2006-0002335

PATIENT
  Age: 58 Year
  Sex: Female
  Weight: 82 kg

DRUGS (2)
  1. OXYCODON 10MG / NALOXON 5MG (NALOXONE HYDROCHLORIDE, OXYCODONE HYDROCH [Suspect]
     Indication: BACK PAIN
     Dosage: 50 MG, DAILY, ORAL
     Route: 048
     Dates: start: 20060413
  2. TRAVATAN [Concomitant]

REACTIONS (1)
  - SOMATOFORM DISORDER [None]
